FAERS Safety Report 8825214 (Version 1)
Quarter: 2012Q4

REPORT INFORMATION
  Report Type: 
  Country: SE (occurrence: SE)
  Receive Date: 20121004
  Receipt Date: 20121004
  Transmission Date: 20130627
  Serious: Yes (Other)
  Sender: FDA-Public Use
  Company Number: SE-JNJFOC-20121000206

PATIENT

DRUGS (3)
  1. TRAMADOL HYDROCHLORIDE [Suspect]
     Indication: FOETAL EXPOSURE DURING PREGNANCY
     Route: 064
  2. MORPHINE [Suspect]
     Indication: FOETAL EXPOSURE DURING PREGNANCY
     Route: 064
  3. SELECTIVE SEROTONIN REUPTAKE INHIBITORS [Suspect]
     Indication: FOETAL EXPOSURE DURING PREGNANCY
     Route: 064

REACTIONS (7)
  - Intraventricular haemorrhage [Unknown]
  - Premature baby [Not Recovered/Not Resolved]
  - Convulsion [Unknown]
  - Respiratory disorder [Unknown]
  - Hypoglycaemia [Unknown]
  - Apgar score low [Unknown]
  - Maternal drugs affecting foetus [None]
